FAERS Safety Report 22230689 (Version 6)
Quarter: 2024Q3

REPORT INFORMATION
  Report Type: Report from Study
  Country: CA (occurrence: CA)
  Receive Date: 20230420
  Receipt Date: 20240712
  Transmission Date: 20241017
  Serious: Yes (Other)
  Sender: JOHNSON AND JOHNSON
  Company Number: CA-JNJFOC-20230411384

PATIENT
  Age: 10 Year
  Sex: Female
  Weight: 43 kg

DRUGS (4)
  1. REMICADE [Suspect]
     Active Substance: INFLIXIMAB
     Indication: Crohn^s disease
     Route: 041
     Dates: start: 20230224
  2. REMICADE [Suspect]
     Active Substance: INFLIXIMAB
     Route: 041
     Dates: start: 2023
  3. REMICADE [Suspect]
     Active Substance: INFLIXIMAB
     Route: 041
  4. REMICADE [Suspect]
     Active Substance: INFLIXIMAB
     Route: 041

REACTIONS (17)
  - Peripheral swelling [Recovering/Resolving]
  - Vaginal discharge [Recovered/Resolved]
  - Gait disturbance [Recovering/Resolving]
  - Gait inability [Not Recovered/Not Resolved]
  - Loss of personal independence in daily activities [Not Recovered/Not Resolved]
  - Pain in extremity [Recovering/Resolving]
  - Abdominal pain [Not Recovered/Not Resolved]
  - Headache [Not Recovered/Not Resolved]
  - Neuralgia [Unknown]
  - Rhinorrhoea [Unknown]
  - Eye swelling [Unknown]
  - Eye pruritus [Unknown]
  - Eye pain [Unknown]
  - Hypersensitivity [Unknown]
  - Insomnia [Unknown]
  - Nasal congestion [Unknown]
  - Off label use [Unknown]

NARRATIVE: CASE EVENT DATE: 20230101
